FAERS Safety Report 12074649 (Version 2)
Quarter: 2016Q1

REPORT INFORMATION
  Report Type: Report from Study
  Country: US (occurrence: US)
  Receive Date: 20160212
  Receipt Date: 20160304
  Transmission Date: 20160526
  Serious: Yes (Hospitalization, Other)
  Sender: FDA-Public Use
  Company Number: US-GILEAD-2016-0197145

PATIENT
  Age: 73 Year
  Sex: Male

DRUGS (3)
  1. BLOOD CELLS, PACKED HUMAN [Concomitant]
     Active Substance: HUMAN BLOOD CELLS
  2. IDELALISIB [Suspect]
     Active Substance: IDELALISIB
     Dosage: 150 MG, BID
     Route: 048
     Dates: start: 20151117
  3. IDELALISIB [Suspect]
     Active Substance: IDELALISIB
     Indication: CHRONIC LYMPHOCYTIC LEUKAEMIA
     Dosage: 150 MG, UNK
     Route: 048
     Dates: start: 20140910

REACTIONS (6)
  - Loss of consciousness [Unknown]
  - Arthralgia [Recovered/Resolved]
  - Drug dose omission [Unknown]
  - Coma [Unknown]
  - Blood disorder [Unknown]
  - Unevaluable event [Unknown]

NARRATIVE: CASE EVENT DATE: 201409
